FAERS Safety Report 10016149 (Version 3)
Quarter: 2014Q2

REPORT INFORMATION
  Report Type: Spontaneous
  Country: IT (occurrence: IT)
  Receive Date: 20140317
  Receipt Date: 20140513
  Transmission Date: 20141212
  Serious: Yes (Hospitalization)
  Sender: FDA-Public Use
  Company Number: IT-PFIZER INC-2014072757

PATIENT
  Age: 65 Year
  Sex: Female

DRUGS (1)
  1. AZITHROMYCIN [Suspect]
     Indication: SINUSITIS
     Dosage: 1 DF, TOTAL
     Route: 048
     Dates: start: 20140211, end: 20140211

REACTIONS (1)
  - Laryngeal oedema [Recovered/Resolved]
